FAERS Safety Report 7285678-X (Version None)
Quarter: 2011Q1

REPORT INFORMATION
  Report Type: 
  Country: None (occurrence: None)
  Receive Date: 20110210
  Receipt Date: 20110201
  Transmission Date: 20110831
  Serious: Yes (Life-Threatening)
  Sender: FDA-Public Use
  Company Number: B0697456A

PATIENT
  Sex: Female
  Weight: 128 kg

DRUGS (3)
  1. MORPHINE [Concomitant]
  2. AUGMENTIN [Suspect]
     Indication: ABSCESS JAW
     Route: 042
     Dates: start: 20110110, end: 20110110
  3. DEXAMETHASONE [Concomitant]

REACTIONS (6)
  - RASH GENERALISED [None]
  - RASH [None]
  - HYPERSENSITIVITY [None]
  - HEART RATE INCREASED [None]
  - CHEST DISCOMFORT [None]
  - CATHETER SITE RASH [None]
